FAERS Safety Report 9661397 (Version 1)
Quarter: 2013Q4

REPORT INFORMATION
  Report Type: Spontaneous
  Country: US (occurrence: US)
  Receive Date: 20131031
  Receipt Date: 20131031
  Transmission Date: 20140711
  Serious: Yes (Hospitalization, Other)
  Sender: FDA-Public Use
  Company Number: US-BAXTER-2013BAX042755

PATIENT
  Age: 30 Year
  Sex: Male

DRUGS (2)
  1. FEIBA [Suspect]
     Indication: FACTOR VIII INHIBITION
     Dosage: PROPHYLAXIS: 75 UNITS/KILOGRAM 3 TIMES PER WEEK
     Route: 065
  2. FEIBA [Suspect]
     Dosage: DURING MANY HOSPITALIZATIONS: EVERY 6-8 HOURS
     Route: 065

REACTIONS (2)
  - Superior vena cava syndrome [Unknown]
  - Thrombosis [Unknown]
